FAERS Safety Report 7833537-3 (Version None)
Quarter: 2011Q4

REPORT INFORMATION
  Report Type: 
  Country: None (occurrence: None)
  Receive Date: 20111020
  Receipt Date: 20111012
  Transmission Date: 20120403
  Serious: Yes (Other)
  Sender: FDA-Public Use
  Company Number: TPA2011A06521

PATIENT
  Age: 80 Year
  Sex: Male

DRUGS (2)
  1. GLYBURIDE [Concomitant]
  2. ACTOS [Suspect]
     Indication: TYPE 2 DIABETES MELLITUS
     Dosage: 30 MG
     Dates: start: 20090101

REACTIONS (2)
  - BLADDER CANCER [None]
  - BLOOD URINE PRESENT [None]
